FAERS Safety Report 25398841 (Version 1)
Quarter: 2025Q2

REPORT INFORMATION
  Report Type: Spontaneous
  Country: US (occurrence: US)
  Receive Date: 20250604
  Receipt Date: 20250604
  Transmission Date: 20250716
  Serious: No
  Sender: SPRINGWORKS THERAPEUTIC
  Company Number: US-SPRINGWORKS THERAPEUTICS-SW-002579

PATIENT

DRUGS (1)
  1. GOMEKLI [Suspect]
     Active Substance: MIRDAMETINIB
     Indication: Product used for unknown indication

REACTIONS (4)
  - Abdominal distension [Unknown]
  - Dyspepsia [Unknown]
  - Nausea [Unknown]
  - Abdominal pain upper [Unknown]
